FAERS Safety Report 13022627 (Version 6)
Quarter: 2017Q1

REPORT INFORMATION
  Report Type: Spontaneous
  Country: CA (occurrence: CA)
  Receive Date: 20161213
  Receipt Date: 20170330
  Transmission Date: 20170428
  Serious: Yes (Hospitalization, Other)
  Sender: FDA-Public Use
  Company Number: CA-PFIZER INC-2016572005

PATIENT
  Age: 64 Year
  Sex: Male

DRUGS (53)
  1. PREDNISOLONE. [Concomitant]
     Active Substance: PREDNISOLONE
     Dosage: 7.5 MG, DAILY
     Route: 048
     Dates: start: 2012
  2. VITAMIN B12 [Concomitant]
     Active Substance: CYANOCOBALAMIN
     Dosage: 2500 UG, 2X/WEEK PM
  3. VICTOZA [Concomitant]
     Active Substance: LIRAGLUTIDE
     Dosage: 0.5 MG, UNK
     Route: 058
     Dates: start: 201702
  4. GENOTROPIN [Concomitant]
     Active Substance: SOMATROPIN
     Indication: HYPOPITUITARISM
     Dosage: 0.5 MG, DAILY
     Route: 058
  5. METFORMIN [Concomitant]
     Active Substance: METFORMIN HYDROCHLORIDE
     Dosage: 500 MG, 2X/DAY
     Route: 048
  6. METOPROLOL. [Concomitant]
     Active Substance: METOPROLOL
     Dosage: 25 MG, 2X/DAY
     Dates: start: 201602
  7. REACTINE /00884302/ [Concomitant]
     Active Substance: CETIRIZINE HYDROCHLORIDE
     Dosage: 20 MG, DAILY AT NIGHT
  8. XYLOCAINE [Concomitant]
     Active Substance: LIDOCAINE HYDROCHLORIDE
     Indication: PRURITUS
     Dosage: 2 %, UNK
  9. SYNTHROID [Concomitant]
     Active Substance: LEVOTHYROXINE SODIUM
     Dosage: 100 UG, UNK
     Route: 048
  10. OLMETEC [Concomitant]
     Active Substance: OLMESARTAN MEDOXOMIL
     Dosage: 20 MG, 2X/DAY
     Route: 048
     Dates: start: 201602
  11. TICAGRELOR [Concomitant]
     Active Substance: TICAGRELOR
     Dosage: 90 MG, 2X/DAY
  12. FUCIDIN /00065701/ [Concomitant]
  13. CORTEF [Suspect]
     Active Substance: HYDROCORTISONE
     Indication: HYPOPITUITARISM
     Dosage: 75 MG, DAILY (20 MG AM, 50 MG PM AND 5 MG HS)
     Route: 048
  14. TESTOSTERONE. [Concomitant]
     Active Substance: TESTOSTERONE
     Dosage: UNK
     Route: 048
  15. CRESTOR [Concomitant]
     Active Substance: ROSUVASTATIN CALCIUM
     Dosage: 10 MG, 1X/DAY, PM
     Route: 048
  16. IRBESARTAN. [Concomitant]
     Active Substance: IRBESARTAN
     Dosage: UNK
  17. PANTOLOC /01263204/ [Concomitant]
     Active Substance: PANTOPRAZOLE SODIUM
     Dosage: 40 MG, AS NEEDED
     Route: 048
  18. BASAGLAR [Concomitant]
     Active Substance: INSULIN GLARGINE
     Dosage: 8 IU, UNK (PM)
     Route: 058
     Dates: start: 201604
  19. TESTOSTERON /00103101/ [Concomitant]
     Active Substance: TESTOSTERONE
     Dosage: UNK UNK, 4X/DAY
  20. DIAZEPAM. [Concomitant]
     Active Substance: DIAZEPAM
     Dosage: 5 MG, DAILY AT NIGHT
  21. ZINC. [Concomitant]
     Active Substance: ZINC
     Dosage: UNK, DAILY, PM
  22. VITAMIN E /00110501/ [Concomitant]
     Active Substance: TOCOPHEROL
     Dosage: 400 MG, DAILY, PM
  23. B COMPLEX /00322001/ [Concomitant]
     Active Substance: CALCIUM PANTOTHENATE\CYANOCOBALAMIN\NIACINAMIDE\PYRIDOXINE HYDROCHLORIDE\RIBOFLAVIN\THIAMINE HYDROCHLORIDE
     Dosage: UNK, 1X/DAY AM
  24. VITAMIN B12 [Concomitant]
     Active Substance: CYANOCOBALAMIN
     Dosage: 2500 UG, DAILY
  25. CORTEF [Suspect]
     Active Substance: HYDROCORTISONE
     Dosage: 50 MG, DAILY (30 MG AM, 15 MG AN AND 5 MG PM)
     Route: 048
     Dates: start: 2014
  26. NORVASC [Concomitant]
     Active Substance: AMLODIPINE BESYLATE
     Dosage: 20 MG, 2X/DAY
     Route: 048
  27. NORVASC [Concomitant]
     Active Substance: AMLODIPINE BESYLATE
     Dosage: 2.5 MG, 2X/DAY (5 MG DAILY, 2.5MG AM AND 2.5 MG IN PM)
     Dates: start: 201602
  28. CLOBETASOL [Concomitant]
     Active Substance: CLOBETASOL
     Dosage: UNK
  29. BASAGLAR [Concomitant]
     Active Substance: INSULIN GLARGINE
     Dosage: 18 IU, 1X/DAY AT NIGHT
     Route: 058
  30. GLUCOBAY [Concomitant]
     Active Substance: ACARBOSE
     Dosage: 100 MG, 3X/DAY
  31. DULCOLAX (BISACODYL) [Concomitant]
     Active Substance: BISACODYL
     Dosage: 10 DF, DAILY AT NIGHT
  32. COQ 10 [Concomitant]
     Active Substance: UBIDECARENONE
     Dosage: UNK, DAILY PM
  33. CYTOMEL [Concomitant]
     Active Substance: LIOTHYRONINE SODIUM
     Dosage: 0.5 MG, DAILY AM
     Dates: start: 201606
  34. BASAGLAR [Concomitant]
     Active Substance: INSULIN GLARGINE
     Dosage: 80 IU, 1X/DAY AT NIGHT (HS)
     Route: 058
  35. ELTROXIN [Concomitant]
     Active Substance: LEVOTHYROXINE
     Dosage: 100 UG, DAILY
     Dates: start: 2007
  36. GLUMETZA [Concomitant]
     Active Substance: METFORMIN HYDROCHLORIDE
     Dosage: 500 MG, 3X/DAY
     Route: 048
  37. GABAPENTINE [Concomitant]
     Active Substance: GABAPENTIN
     Dosage: 600 MG, DAILY: 2X 300 MG CAPSULE AT NIGHT
  38. ASPIRIN /00002701/ [Concomitant]
     Active Substance: ASPIRIN
     Dosage: 81 MG, DAILY ONLY PM
     Dates: start: 20160629
  39. VITAMIN D /00107901/ [Concomitant]
     Active Substance: ERGOCALCIFEROL
     Dosage: 60000 IU, MONTHLY
  40. CLOBETASOL /00337102/ [Concomitant]
     Active Substance: CLOBETASOL
  41. GENOTROPIN [Concomitant]
     Active Substance: SOMATROPIN
     Indication: GROWTH HORMONE DEFICIENCY
     Dosage: 0.6 MG, DAILY
     Route: 058
  42. HUMULIN NOS [Concomitant]
     Active Substance: INSULIN HUMAN
     Dosage: 54 IU, DAILY (30 UNITS IN MORNING, 24 UNITS IN EVENING)
  43. NORVASC [Concomitant]
     Active Substance: AMLODIPINE BESYLATE
     Dosage: 5 MG, 2X/DAY
  44. GLUMETZA [Concomitant]
     Active Substance: METFORMIN HYDROCHLORIDE
     Dosage: 500 MG, 2X/DAY
     Route: 048
     Dates: start: 2007
  45. TECTA [Concomitant]
     Active Substance: PANTOPRAZOLE MAGNESIUM
     Dosage: 40 MG, 2X/DAY
     Dates: start: 2014
  46. PERCOCET /00446701/ [Concomitant]
     Active Substance: ACETAMINOPHEN\OXYCODONE HYDROCHLORIDE\OXYCODONE TEREPHTHALATE
     Indication: ARTHRALGIA
     Dosage: 2 DF, 4X/DAY
  47. TARGIN [Concomitant]
     Active Substance: NALOXONE HYDROCHLORIDE\OXYCODONE HYDROCHLORIDE
     Dosage: 2 DF, 2X/DAY
  48. CALCIUM [Concomitant]
     Active Substance: CALCIUM
     Dosage: 600 MG, 1X/DAY PM
  49. GENOTROPIN [Concomitant]
     Active Substance: SOMATROPIN
     Indication: ADRENAL INSUFFICIENCY
     Dosage: 0.4 MG, DAILY
     Route: 058
     Dates: start: 201604
  50. METFORMIN [Concomitant]
     Active Substance: METFORMIN HYDROCHLORIDE
     Dosage: 500 MG, DAILY
     Route: 048
  51. TARGIN [Concomitant]
     Active Substance: NALOXONE HYDROCHLORIDE\OXYCODONE HYDROCHLORIDE
     Dosage: 3 TABLETS TWICE A DAY OR MORE
  52. MAGNESIUM GLYCINATE [Concomitant]
     Active Substance: MAGNESIUM GLYCINATE
     Dosage: 400 MG, DAILY, PM
  53. VITAMIN C [Concomitant]
     Active Substance: ASCORBIC ACID
     Dosage: 500 MG, DAILY, PM

REACTIONS (1)
  - Osteonecrosis [Not Recovered/Not Resolved]

NARRATIVE: CASE EVENT DATE: 201605
